FAERS Safety Report 14649080 (Version 1)
Quarter: 2018Q1

REPORT INFORMATION
  Report Type: Spontaneous
  Country: RU (occurrence: RU)
  Receive Date: 20180316
  Receipt Date: 20180316
  Transmission Date: 20180509
  Serious: Yes (Death, Other)
  Sender: FDA-Public Use
  Company Number: RU-REGENERON PHARMACEUTICALS, INC.-2018-18168

PATIENT

DRUGS (1)
  1. EYLEA [Suspect]
     Active Substance: AFLIBERCEPT
     Indication: RETINOPATHY OF PREMATURITY
     Dosage: DOSE, FREQUENCY AND TREATED EYE UNSPECIFIED.
     Route: 031
     Dates: start: 20170609

REACTIONS (9)
  - Product use in unapproved indication [Unknown]
  - Neonatal disorder [Fatal]
  - Cardiovascular insufficiency [Unknown]
  - Drug administered to patient of inappropriate age [Unknown]
  - Candida infection [Fatal]
  - Patent ductus arteriosus [Fatal]
  - Bronchopulmonary dysplasia [Fatal]
  - Off label use [Unknown]
  - Cerebral ischaemia [Fatal]
